FAERS Safety Report 25979186 (Version 1)
Quarter: 2025Q4

REPORT INFORMATION
  Report Type: Spontaneous
  Country: GB (occurrence: GB)
  Receive Date: 20251030
  Receipt Date: 20251030
  Transmission Date: 20260118
  Serious: Yes (Other)
  Sender: MYLAN
  Company Number: None

PATIENT
  Age: 55 Year
  Sex: Female

DRUGS (8)
  1. ATORVASTATIN [Suspect]
     Active Substance: ATORVASTATIN
     Indication: Coronary artery disease
     Dosage: 20 MILLIGRAM
     Dates: start: 20250716, end: 20250911
  2. ATORVASTATIN [Suspect]
     Active Substance: ATORVASTATIN
     Dosage: 20 MILLIGRAM
     Route: 065
     Dates: start: 20250716, end: 20250911
  3. ATORVASTATIN [Suspect]
     Active Substance: ATORVASTATIN
     Dosage: 20 MILLIGRAM
     Route: 065
     Dates: start: 20250716, end: 20250911
  4. ATORVASTATIN [Suspect]
     Active Substance: ATORVASTATIN
     Dosage: 20 MILLIGRAM
     Dates: start: 20250716, end: 20250911
  5. GLYCOPYRROLATE [Concomitant]
     Active Substance: GLYCOPYRROLATE
     Indication: Chronic obstructive pulmonary disease
     Dosage: UNK
  6. GLYCOPYRROLATE [Concomitant]
     Active Substance: GLYCOPYRROLATE
     Dosage: UNK
     Route: 065
  7. GLYCOPYRROLATE [Concomitant]
     Active Substance: GLYCOPYRROLATE
     Dosage: UNK
     Route: 065
  8. GLYCOPYRROLATE [Concomitant]
     Active Substance: GLYCOPYRROLATE
     Dosage: UNK

REACTIONS (2)
  - Lip dry [Recovered/Resolved]
  - Lip pain [Recovered/Resolved]

NARRATIVE: CASE EVENT DATE: 20250716
